FAERS Safety Report 10768681 (Version 1)
Quarter: 2015Q1

REPORT INFORMATION
  Report Type: Spontaneous
  Country: US (occurrence: None)
  Receive Date: 20150205
  Receipt Date: 20150205
  Transmission Date: 20150721
  Serious: Yes (Hospitalization)
  Sender: FDA-Public Use
  Company Number: None

PATIENT
  Age: 76 Year
  Sex: Female
  Weight: 96.3 kg

DRUGS (17)
  1. WARFARIN [Concomitant]
     Active Substance: WARFARIN
  2. MACRODANTIN [Concomitant]
     Active Substance: NITROFURANTOIN
  3. BACTRIM [Suspect]
     Active Substance: SULFAMETHOXAZOLE\TRIMETHOPRIM
     Indication: CELLULITIS
     Dosage: RECENT
     Route: 048
  4. VIBRAMYCIN [Concomitant]
     Active Substance: DOXYCYCLINE
  5. SPIRIVA [Concomitant]
     Active Substance: TIOTROPIUM BROMIDE MONOHYDRATE
  6. COREG [Concomitant]
     Active Substance: CARVEDILOL
  7. CELEBREX [Concomitant]
     Active Substance: CELECOXIB
  8. COZAAR [Concomitant]
     Active Substance: LOSARTAN POTASSIUM
  9. PRILOSEC [Concomitant]
     Active Substance: OMEPRAZOLE MAGNESIUM
  10. JANUVIA [Concomitant]
     Active Substance: SITAGLIPTIN PHOSPHATE
  11. ESTRACE [Concomitant]
     Active Substance: ESTRADIOL
  12. ZOCOR [Concomitant]
     Active Substance: SIMVASTATIN
  13. RESTORIL [Concomitant]
     Active Substance: TEMAZEPAM
  14. NORCO [Concomitant]
     Active Substance: ACETAMINOPHEN\HYDROCODONE BITARTRATE
  15. CYMBALTA [Concomitant]
     Active Substance: DULOXETINE HYDROCHLORIDE
  16. AMARYL [Concomitant]
     Active Substance: GLIMEPIRIDE
  17. PROVENTIL [Concomitant]
     Active Substance: ALBUTEROL

REACTIONS (3)
  - Rash erythematous [None]
  - No therapeutic response [None]
  - Blister [None]

NARRATIVE: CASE EVENT DATE: 20141013
